FAERS Safety Report 7523622-8 (Version None)
Quarter: 2011Q2

REPORT INFORMATION
  Report Type: 
  Country: None (occurrence: None)
  Receive Date: 20110603
  Receipt Date: 20110524
  Transmission Date: 20111010
  Serious: Yes (Death, Other)
  Sender: FDA-Public Use
  Company Number: US-CELGENEUS-163-21880-11053168

PATIENT

DRUGS (14)
  1. DEXAMETHASONE [Suspect]
     Dosage: 10 MILLIGRAM
     Route: 065
  2. ASPIRIN [Concomitant]
     Dosage: 81 MG OR 325 MG
     Route: 065
  3. COUMADIN [Concomitant]
     Route: 065
  4. DEXAMETHASONE [Suspect]
     Dosage: 10 MILLIGRAM
     Route: 065
  5. BORTEZOMIB [Suspect]
     Indication: MULTIPLE MYELOMA
     Dosage: 1.3 MILLIGRAM/SQ. METER
     Route: 065
  6. ANTIVIRALS [Concomitant]
     Indication: HERPES ZOSTER
     Route: 065
  7. ANTIVIRALS [Concomitant]
     Indication: PROPHYLAXIS
  8. ACYCLOVIR [Concomitant]
     Indication: PROPHYLAXIS
  9. HEPARIN [Concomitant]
     Route: 065
  10. REVLIMID [Suspect]
     Indication: MULTIPLE MYELOMA
     Dosage: 15-25MG
     Route: 048
  11. DEXAMETHASONE [Suspect]
     Indication: MULTIPLE MYELOMA
     Dosage: 20 MILLIGRAM
     Route: 065
  12. ACYCLOVIR [Concomitant]
     Indication: HERPES ZOSTER
     Route: 065
  13. BORTEZOMIB [Suspect]
     Route: 065
  14. DOXORUBICIN HCL [Suspect]
     Indication: MULTIPLE MYELOMA
     Dosage: 20-30 MG/M2
     Route: 065

REACTIONS (15)
  - DEEP VEIN THROMBOSIS [None]
  - PALMAR-PLANTAR ERYTHRODYSAESTHESIA SYNDROME [None]
  - DEATH [None]
  - FATIGUE [None]
  - INFECTION [None]
  - DISEASE PROGRESSION [None]
  - CARDIOVASCULAR DISORDER [None]
  - PERIPHERAL SENSORY NEUROPATHY [None]
  - NAUSEA [None]
  - THROMBOCYTOPENIA [None]
  - DIARRHOEA [None]
  - NEUTROPENIA [None]
  - CONSTIPATION [None]
  - NEUROPATHY PERIPHERAL [None]
  - PULMONARY EMBOLISM [None]
